FAERS Safety Report 18639198 (Version 1)
Quarter: 2020Q4

REPORT INFORMATION
  Report Type: Other
  Country: CA (occurrence: CA)
  Receive Date: 20201218
  Receipt Date: 20201218
  Transmission Date: 20210114
  Serious: Yes (Other)
  Sender: FDA-Public Use
  Company Number: CA-INTERCEPT-PM2020000946

PATIENT
  Age: 57 Year
  Sex: Female
  Weight: 82.54 kg

DRUGS (11)
  1. GRAVOL [Concomitant]
     Active Substance: DIMENHYDRINATE
     Indication: NAUSEA
  2. OCALIVA [Suspect]
     Active Substance: OBETICHOLIC ACID
     Dosage: 5 MILLIGRAM, QD
     Route: 048
     Dates: start: 202009
  3. ADVIL (MEFENAMIC ACID) [Suspect]
     Active Substance: MEFENAMIC ACID
     Indication: FRACTURE PAIN
     Dosage: UNK
  4. URSO [Concomitant]
     Active Substance: URSODIOL
     Dosage: 750 MILLIGRAM
     Dates: start: 202006
  5. VITAMIN D 2000 [Concomitant]
     Active Substance: VITAMIN D NOS
     Indication: OSTEOPOROSIS
  6. URSO [Concomitant]
     Active Substance: URSODIOL
     Dosage: 1000 MILLIGRAM
  7. ROBAXACET [Concomitant]
     Active Substance: ACETAMINOPHEN\METHOCARBAMOL
  8. OCALIVA [Suspect]
     Active Substance: OBETICHOLIC ACID
     Indication: PRIMARY BILIARY CHOLANGITIS
     Dosage: 5 MILLIGRAM, QD
     Route: 048
     Dates: start: 20200128, end: 202004
  9. URSO [Concomitant]
     Active Substance: URSODIOL
     Dosage: 750 MILLIGRAM, QD (250 MG AM, 500 MG PM))
     Dates: start: 201903
  10. URSO [Concomitant]
     Active Substance: URSODIOL
     Dosage: 250 MILLIGRAM, QD
  11. CALCIUM [Concomitant]
     Active Substance: CALCIUM
     Indication: OSTEOPOROSIS

REACTIONS (13)
  - Vomiting [Recovered/Resolved]
  - Abdominal distension [Not Recovered/Not Resolved]
  - Platelet count abnormal [Unknown]
  - Dry eye [Unknown]
  - Hepatomegaly [Unknown]
  - Sjogren^s syndrome [Unknown]
  - Hypothermia [Unknown]
  - Fracture pain [Not Recovered/Not Resolved]
  - Nausea [Recovering/Resolving]
  - Blood alkaline phosphatase abnormal [Unknown]
  - Abdominal pain upper [Unknown]
  - Dry mouth [Unknown]
  - Alanine aminotransferase abnormal [Unknown]

NARRATIVE: CASE EVENT DATE: 2020
